FAERS Safety Report 26130835 (Version 1)
Quarter: 2025Q4

REPORT INFORMATION
  Report Type: Spontaneous
  Country: US (occurrence: None)
  Receive Date: 20251208
  Receipt Date: 20251208
  Transmission Date: 20260118
  Serious: Yes (Life-Threatening, Hospitalization)
  Sender: FDA-CTU
  Company Number: None

PATIENT
  Age: 79 Year
  Sex: Male

DRUGS (1)
  1. EMPAGLIFLOZIN [Suspect]
     Active Substance: EMPAGLIFLOZIN
     Indication: Diabetes mellitus
     Dosage: 25 GM EVERY DAY PO
     Route: 048
     Dates: start: 20240829, end: 20250920

REACTIONS (6)
  - Asthenia [None]
  - Decreased appetite [None]
  - Failure to thrive [None]
  - Blood glucose increased [None]
  - Anion gap increased [None]
  - Blood ketone body increased [None]

NARRATIVE: CASE EVENT DATE: 20250920
